FAERS Safety Report 23408695 (Version 1)
Quarter: 2024Q1

REPORT INFORMATION
  Report Type: Report from Study
  Country: US (occurrence: US)
  Receive Date: 20240117
  Receipt Date: 20240117
  Transmission Date: 20240410
  Serious: No
  Sender: FDA-Public Use
  Company Number: US-ALXN-202401USA000752US

PATIENT

DRUGS (1)
  1. STRENSIQ [Suspect]
     Active Substance: ASFOTASE ALFA
     Indication: Product used for unknown indication
     Dosage: UNK
     Route: 065

REACTIONS (14)
  - Vitamin B6 increased [Unknown]
  - Heart rate decreased [Unknown]
  - Hypotension [Unknown]
  - Blood cholesterol decreased [Unknown]
  - Low density lipoprotein decreased [Unknown]
  - High density lipoprotein [Unknown]
  - Alanine aminotransferase decreased [Unknown]
  - Anion gap decreased [Unknown]
  - Fatigue [Unknown]
  - Hypersomnia [Unknown]
  - Headache [Unknown]
  - Pain [Unknown]
  - Asthenia [Unknown]
  - Bone pain [Unknown]

NARRATIVE: CASE EVENT DATE: 20231005
